FAERS Safety Report 8499563-9 (Version None)
Quarter: 2012Q3

REPORT INFORMATION
  Report Type: 
  Country: None (occurrence: None)
  Receive Date: 20120710
  Receipt Date: 20120629
  Transmission Date: 20120928
  Serious: Yes (Hospitalization)
  Sender: FDA-Public Use
  Company Number: US-BRISTOL-MYERS SQUIBB COMPANY-16726606

PATIENT
  Age: 44 Year
  Sex: Female
  Weight: 83 kg

DRUGS (1)
  1. ORENCIA [Suspect]
     Indication: RHEUMATOID ARTHRITIS
     Dosage: 09-APR-2012: ORENCIA IV 10-APR-2012:ORENCIA SUBQ
     Route: 042
     Dates: start: 20120409

REACTIONS (4)
  - INJECTION SITE REACTION [None]
  - SINUSITIS [None]
  - SPINAL COLUMN STENOSIS [None]
  - INTERVERTEBRAL DISC PROTRUSION [None]
